FAERS Safety Report 16545402 (Version 1)
Quarter: 2019Q3

REPORT INFORMATION
  Report Type: Spontaneous
  Country: US (occurrence: US)
  Receive Date: 20190708
  Receipt Date: 20190708
  Transmission Date: 20191004
  Serious: Yes (Other)
  Sender: FDA-Public Use
  Company Number: None

PATIENT
  Age: 30 Year
  Sex: Female
  Weight: 135 kg

DRUGS (3)
  1. EQUATE EYE ALLERGY RELIEF DROPS [Suspect]
     Active Substance: NAPHAZOLINE HYDROCHLORIDE\PHENIRAMINE MALEATE
     Indication: EYE ALLERGY
     Dosage: ?          QUANTITY:1 DROP(S);?
     Route: 047
     Dates: start: 20190201, end: 20190620
  2. EQUATE EYE ALLERGY RELIEF DROPS [Suspect]
     Active Substance: NAPHAZOLINE HYDROCHLORIDE\PHENIRAMINE MALEATE
     Indication: EYE IRRITATION
     Dosage: ?          QUANTITY:1 DROP(S);?
     Route: 047
     Dates: start: 20190201, end: 20190620
  3. NATURAL TEARS [Suspect]
     Active Substance: POLYVINYL ALCOHOL\POVIDONE

REACTIONS (2)
  - Headache [None]
  - Vision blurred [None]

NARRATIVE: CASE EVENT DATE: 20190403
